FAERS Safety Report 5684474-4 (Version None)
Quarter: 2008Q1

REPORT INFORMATION
  Report Type: 
  Country: None (occurrence: None)
  Receive Date: 20080327
  Receipt Date: 20080327
  Transmission Date: 20080703
  Serious: No
  Sender: FDA-Public Use
  Company Number: None

PATIENT
  Age: 58 Year
  Sex: Female
  Weight: 3 kg

DRUGS (2)
  1. DILAUDID [Suspect]
     Indication: ARTHRITIS
     Dosage: 4 MG QD PO
     Route: 048
  2. DILAUDID [Suspect]
     Indication: FIBROMYALGIA
     Dosage: 4 MG QD PO
     Route: 048

REACTIONS (2)
  - DRUG INEFFECTIVE [None]
  - PHARMACEUTICAL PRODUCT COMPLAINT [None]
